FAERS Safety Report 20776233 (Version 2)
Quarter: 2022Q2

REPORT INFORMATION
  Report Type: Spontaneous
  Country: DE (occurrence: DE)
  Receive Date: 20220502
  Receipt Date: 20220617
  Transmission Date: 20220720
  Serious: Yes (Other)
  Sender: FDA-Public Use
  Company Number: DE-ALXN-A202205138

PATIENT
  Sex: Female

DRUGS (1)
  1. ULTOMIRIS [Suspect]
     Active Substance: RAVULIZUMAB-CWVZ
     Indication: Paroxysmal nocturnal haemoglobinuria
     Dosage: UNK, EVERY 8 WEEKS
     Route: 065
     Dates: start: 2011

REACTIONS (5)
  - Conjunctival haemorrhage [Unknown]
  - Eye pain [Unknown]
  - Rosacea [Unknown]
  - Eyelid pain [Unknown]
  - Hypermetropia [Unknown]
